FAERS Safety Report 5982916-8 (Version None)
Quarter: 2008Q4

REPORT INFORMATION
  Report Type: 
  Country: None (occurrence: None)
  Receive Date: 20081205
  Receipt Date: 20081205
  Transmission Date: 20090506
  Serious: Yes (Life-Threatening, Hospitalization)
  Sender: FDA-Public Use
  Company Number: None

PATIENT
  Age: 44 Year
  Sex: Female

DRUGS (1)
  1. ACYCLOVIR [Suspect]
     Indication: ENCEPHALITIS
     Dosage: 750 MG EVERY 8 HOURS IV
     Route: 042
     Dates: start: 20081103, end: 20081104

REACTIONS (1)
  - RENAL IMPAIRMENT [None]
